FAERS Safety Report 7298501-4 (Version None)
Quarter: 2011Q1

REPORT INFORMATION
  Report Type: 
  Country: None (occurrence: None)
  Receive Date: 20110217
  Receipt Date: 20110214
  Transmission Date: 20110831
  Serious: Yes (Hospitalization, Other)
  Sender: FDA-Public Use
  Company Number: US-JNJFOC-20100900814

PATIENT
  Sex: Male
  Weight: 68.04 kg

DRUGS (3)
  1. LEVAQUIN [Suspect]
     Indication: INFLAMMATION
     Route: 048
  2. PREDNISONE TAB [Suspect]
     Indication: PRODUCT USED FOR UNKNOWN INDICATION
     Route: 065
  3. STEROIDS NOS [Suspect]
     Indication: ILL-DEFINED DISORDER
     Route: 065

REACTIONS (4)
  - CONTUSION [None]
  - OFF LABEL USE [None]
  - TENDON RUPTURE [None]
  - TENDONITIS [None]
